FAERS Safety Report 4727434-X (Version None)
Quarter: 2005Q3

REPORT INFORMATION
  Report Type: 
  Country: None (occurrence: None)
  Receive Date: 20050727
  Receipt Date: 20050727
  Transmission Date: 20060218
  Serious: Yes (Hospitalization)
  Sender: FDA-Public Use
  Company Number: None

PATIENT
  Age: 59 Year
  Sex: Female
  Weight: 62.1428 kg

DRUGS (3)
  1. ETANERCEPT [Suspect]
     Indication: ARTHRITIS
     Dosage: SQ TWICE WEEKLY (DOSE NOT GIVEN)
     Route: 058
     Dates: start: 19980101, end: 20050206
  2. ADALAT [Concomitant]
  3. ACTONEL [Concomitant]

REACTIONS (2)
  - HYPOAESTHESIA [None]
  - MULTIPLE SCLEROSIS [None]
